FAERS Safety Report 23923721 (Version 1)
Quarter: 2024Q2

REPORT INFORMATION
  Report Type: Spontaneous
  Country: FR (occurrence: FR)
  Receive Date: 20240531
  Receipt Date: 20240531
  Transmission Date: 20240716
  Serious: Yes (Other)
  Sender: FDA-Public Use
  Company Number: FR-AFSSAPS-PA2024000595

PATIENT
  Age: 86 Year
  Sex: Female

DRUGS (3)
  1. LOPERAMIDE [Suspect]
     Active Substance: LOPERAMIDE
     Indication: Pain
     Dosage: 2 MILLIGRAM, DAILY
     Route: 048
     Dates: start: 20240211
  2. ACUPAN [Suspect]
     Active Substance: NEFOPAM HYDROCHLORIDE
     Indication: Pain
     Dosage: UNK
     Route: 051
     Dates: start: 20240207, end: 20240212
  3. INNOHEP [Suspect]
     Active Substance: TINZAPARIN SODIUM
     Indication: Pain
     Dosage: UNK
     Route: 051
     Dates: start: 20240207

REACTIONS (2)
  - Visual impairment [Recovered/Resolved]
  - Transient aphasia [Recovered/Resolved]

NARRATIVE: CASE EVENT DATE: 20240211
